FAERS Safety Report 4343496-6 (Version None)
Quarter: 2004Q2

REPORT INFORMATION
  Report Type: 
  Country: None (occurrence: None)
  Receive Date: 20040419
  Receipt Date: 20040304
  Transmission Date: 20050107
  Serious: Yes (Death)
  Sender: FDA-Public Use
  Company Number: A-US2002-00210

PATIENT
  Sex: Female

DRUGS (5)
  1. TRACLEER [Suspect]
     Indication: PULMONARY HYPERTENSION
     Dosage: 62.5 MG, BID , ORAL
     Route: 048
     Dates: start: 20000226, end: 20020318
  2. LASIX [Concomitant]
  3. COUMADIN [Concomitant]
  4. SYNTHROID [Concomitant]
  5. OXYGEN [Concomitant]

REACTIONS (4)
  - HEADACHE [None]
  - MALAISE [None]
  - NASAL CONGESTION [None]
  - NAUSEA [None]
